FAERS Safety Report 6423220-3 (Version None)
Quarter: 2009Q4

REPORT INFORMATION
  Report Type: 
  Country: None (occurrence: None)
  Receive Date: 20091102
  Receipt Date: 20091023
  Transmission Date: 20100525
  Serious: Yes (Other)
  Sender: FDA-Public Use
  Company Number: AR-ABBOTT-09P-007-0604647-00

PATIENT
  Sex: Male
  Weight: 70 kg

DRUGS (1)
  1. VALCOTE [Suspect]
     Indication: EPILEPSY
     Route: 048
     Dates: start: 19990101

REACTIONS (1)
  - ANTICONVULSANT DRUG LEVEL BELOW THERAPEUTIC [None]
